FAERS Safety Report 7601371-5 (Version None)
Quarter: 2011Q3

REPORT INFORMATION
  Report Type: 
  Country: None (occurrence: None)
  Receive Date: 20110711
  Receipt Date: 20110630
  Transmission Date: 20111222
  Serious: Yes (Other)
  Sender: FDA-Public Use
  Company Number: US-ASTRAZENECA-2011SE39580

PATIENT
  Sex: Female

DRUGS (2)
  1. ZOMIG [Suspect]
     Indication: ANXIETY
     Route: 048
     Dates: start: 19970101
  2. ZOMIG [Suspect]
     Indication: DEPRESSION
     Route: 048
     Dates: start: 19970101

REACTIONS (4)
  - CRANIOCEREBRAL INJURY [None]
  - IMPAIRED WORK ABILITY [None]
  - OFF LABEL USE [None]
  - DISABILITY [None]
